FAERS Safety Report 6107596-2 (Version None)
Quarter: 2009Q1

REPORT INFORMATION
  Report Type: 
  Country: None (occurrence: None)
  Receive Date: 20090309
  Receipt Date: 20090304
  Transmission Date: 20090719
  Serious: Yes (Other)
  Sender: FDA-Public Use
  Company Number: BE-ASTRAZENECA-2009AC00697

PATIENT
  Sex: Female

DRUGS (3)
  1. ZOLADEX [Suspect]
     Indication: BREAST CANCER
     Route: 058
     Dates: end: 20080101
  2. NOLVADEX [Suspect]
     Indication: BREAST CANCER
     Route: 048
     Dates: end: 20070301
  3. FEMARA [Concomitant]
     Indication: BREAST CANCER
     Dates: start: 20070301, end: 20080101

REACTIONS (2)
  - DRUG EXPOSURE DURING PREGNANCY [None]
  - UNWANTED PREGNANCY [None]
